FAERS Safety Report 16314337 (Version 5)
Quarter: 2022Q2

REPORT INFORMATION
  Report Type: Spontaneous
  Country: ES (occurrence: ES)
  Receive Date: 20190515
  Receipt Date: 20220523
  Transmission Date: 20220720
  Serious: Yes (Other)
  Sender: FDA-Public Use
  Company Number: ES-MYLANLABS-2017M1073678

PATIENT
  Age: 72 Year
  Sex: Male

DRUGS (36)
  1. INSULIN GLARGINE [Suspect]
     Active Substance: INSULIN GLARGINE
     Indication: Diabetes mellitus
     Dosage: UNK UNK, UNKNOWN
     Route: 065
  2. VALSARTAN [Suspect]
     Active Substance: VALSARTAN
     Indication: Hypertension
     Dosage: 1 DOSAGE FORM, DAILY
     Route: 065
  3. VALSARTAN [Suspect]
     Active Substance: VALSARTAN
     Dosage: 1 DOSAGE FORM, DAILY
  4. CITICOLINE SODIUM [Suspect]
     Active Substance: CITICOLINE SODIUM
     Indication: Prophylaxis
     Dosage: UNK UNK, UNKNOWN
     Route: 048
  5. CITICOLINE SODIUM [Suspect]
     Active Substance: CITICOLINE SODIUM
     Indication: Cerebrovascular accident prophylaxis
  6. KEPPRA [Suspect]
     Active Substance: LEVETIRACETAM
     Indication: Product used for unknown indication
     Dosage: 1 DOSAGE FORM, BID
     Route: 065
  7. KEPPRA [Suspect]
     Active Substance: LEVETIRACETAM
     Dosage: 0.5 DOSAGE FORM, EACH MORNING
     Route: 065
  8. KEPPRA [Suspect]
     Active Substance: LEVETIRACETAM
     Dosage: 0.5 DF, AM
  9. KEPPRA [Suspect]
     Active Substance: LEVETIRACETAM
     Dosage: 2 DOSAGE FORM, DAILY
  10. KEPPRA [Suspect]
     Active Substance: LEVETIRACETAM
     Dosage: 1 DOSAGE FORM, DAILY
     Route: 065
  11. TAMSULOSIN [Suspect]
     Active Substance: TAMSULOSIN
     Indication: Benign prostatic hyperplasia
     Dosage: 1 DF, BID
     Route: 065
  12. TAMSULOSIN [Suspect]
     Active Substance: TAMSULOSIN
     Dosage: 1 DF, BID (1-0-1)
  13. ATORVASTATIN [Suspect]
     Active Substance: ATORVASTATIN
     Indication: Hypercholesterolaemia
     Dosage: 1 DOSAGE FORM, DAILY
     Route: 065
  14. ATORVASTATIN [Suspect]
     Active Substance: ATORVASTATIN
     Dosage: 1 DOSAGE FORM, DAILY
  15. CLOPIDOGREL [Suspect]
     Active Substance: CLOPIDOGREL BISULFATE
     Indication: Prophylaxis
     Dosage: 1 DOSAGE FORM, DAILY
     Route: 065
  16. CLOPIDOGREL [Suspect]
     Active Substance: CLOPIDOGREL BISULFATE
     Indication: Cerebrovascular accident prophylaxis
     Dosage: 1 DOSAGE FORM, DAILY
  17. ASPIRIN [Suspect]
     Active Substance: ASPIRIN
     Indication: Prophylaxis
     Dosage: 1 DOSAGE FORM, DAILY
     Route: 065
  18. ASPIRIN [Suspect]
     Active Substance: ASPIRIN
     Indication: Cerebrovascular accident prophylaxis
     Dosage: 1 DOSAGE FORM, DAILY
  19. HERBALS\SAW PALMETTO [Suspect]
     Active Substance: HERBALS\SAW PALMETTO
     Indication: Benign prostatic hyperplasia
     Dosage: 1 DOSAGE FORM, UNKNOWN
     Route: 065
  20. HERBALS\SAW PALMETTO [Suspect]
     Active Substance: HERBALS\SAW PALMETTO
     Dosage: 1 DOSAGE FORM
  21. LERCANIDIPINE [Suspect]
     Active Substance: LERCANIDIPINE
     Indication: Hypertension
     Dosage: 1 DOSAGE FORM, DAILY
     Route: 065
  22. LERCANIDIPINE [Suspect]
     Active Substance: LERCANIDIPINE
     Dosage: 1 DOSAGE FORM, DAILY
  23. RISPERIDONE [Suspect]
     Active Substance: RISPERIDONE
     Indication: Behaviour disorder
     Dosage: UNK UNK, UNKNOWN
     Route: 065
  24. RISPERIDONE [Suspect]
     Active Substance: RISPERIDONE
     Indication: Epilepsy
     Dosage: UNK, UNKNOWN
     Route: 065
  25. RANITIDINE [Suspect]
     Active Substance: RANITIDINE
     Indication: Prophylaxis
     Dosage: 1 DOSAGE FORM, DAILY
     Route: 065
  26. RANITIDINE [Suspect]
     Active Substance: RANITIDINE
     Indication: Gastric mucosal lesion
     Dosage: 1 DOSAGE FORM, DAILY
  27. GEMFIBROZIL [Suspect]
     Active Substance: GEMFIBROZIL
     Indication: Hypercholesterolaemia
     Dosage: 1 DOSAGE FORM, DAILY
     Route: 065
  28. GEMFIBROZIL [Suspect]
     Active Substance: GEMFIBROZIL
     Dosage: 1 DOSAGE FORM, DAILY
  29. XIGDUO XR [Suspect]
     Active Substance: DAPAGLIFLOZIN PROPANEDIOL\METFORMIN HYDROCHLORIDE
     Indication: Diabetes mellitus
     Dosage: 1 DOSAGE FORM, BID
     Route: 065
  30. XIGDUO XR [Suspect]
     Active Substance: DAPAGLIFLOZIN PROPANEDIOL\METFORMIN HYDROCHLORIDE
     Dosage: 2 DOSAGE FORM, DAILY
  31. LORMETAZEPAM [Suspect]
     Active Substance: LORMETAZEPAM
     Indication: Insomnia
     Dosage: 1 DOSAGE FORM, DAILY
     Route: 065
  32. LORMETAZEPAM [Suspect]
     Active Substance: LORMETAZEPAM
     Dosage: 1 DOSAGE FORM, DAILY
  33. SERTRALINE [Suspect]
     Active Substance: SERTRALINE HYDROCHLORIDE
     Indication: Behaviour disorder
     Dosage: 0.5 DOSAGE FORM, DAILY
     Route: 065
  34. SERTRALINE [Suspect]
     Active Substance: SERTRALINE HYDROCHLORIDE
     Dosage: 0.5 DOSAGE FORM, DAILY
  35. SERTRALINE [Suspect]
     Active Substance: SERTRALINE HYDROCHLORIDE
     Dosage: 0.5 DOSAGE FORM, DAILY
     Route: 065
  36. LINAGLIPTIN [Suspect]
     Active Substance: LINAGLIPTIN
     Indication: Diabetes mellitus
     Dosage: 1 DOSAGE FORM, BID
     Route: 065

REACTIONS (5)
  - Hyperglycaemia [Recovered/Resolved with Sequelae]
  - Hypertension [Recovered/Resolved]
  - Fatigue [Unknown]
  - Blood cholesterol increased [Recovered/Resolved]
  - Blood triglycerides increased [Recovered/Resolved]
